FAERS Safety Report 9383533 (Version 2)
Quarter: 2013Q3

REPORT INFORMATION
  Report Type: Spontaneous
  Country: US (occurrence: US)
  Receive Date: 20130704
  Receipt Date: 20130718
  Transmission Date: 20140515
  Serious: No
  Sender: FDA-Public Use
  Company Number: US-PFIZER INC-2013194885

PATIENT
  Age: 80 Year
  Sex: Female

DRUGS (6)
  1. PREMARIN [Suspect]
     Indication: MENOPAUSAL SYMPTOMS
     Dosage: 1.25 MG, UNK
  2. ELAVIL [Concomitant]
     Dosage: UNK
  3. EXCEDRIN [Concomitant]
     Dosage: UNK
  4. TESTOSTERONE [Concomitant]
     Dosage: UNK
  5. PROGESTERONE [Concomitant]
     Dosage: UNK
  6. HYDROCODONE [Concomitant]
     Dosage: UNK

REACTIONS (3)
  - Drug ineffective [Unknown]
  - Mental status changes [Unknown]
  - Malaise [Unknown]
